FAERS Safety Report 10886432 (Version 3)
Quarter: 2015Q2

REPORT INFORMATION
  Report Type: Spontaneous
  Country: US (occurrence: US)
  Receive Date: 20150304
  Receipt Date: 20150401
  Transmission Date: 20150821
  Serious: Yes (Hospitalization, Other)
  Sender: FDA-Public Use
  Company Number: US-UNITED THERAPEUTICS-UNT-2015-001730

PATIENT
  Age: 22 Year
  Sex: Male
  Weight: 73.16 kg

DRUGS (4)
  1. LETAIRIS [Concomitant]
     Active Substance: AMBRISENTAN
     Indication: PRODUCT USED FOR UNKNOWN INDICATION
  2. REMODULIN [Suspect]
     Active Substance: TREPROSTINIL
     Indication: PULMONARY ARTERIAL HYPERTENSION
     Dosage: 0.100 ?G/KG, CONTINUING
     Route: 041
     Dates: start: 20130116
  3. REMODULIN [Suspect]
     Active Substance: TREPROSTINIL
     Dosage: 10.038 ?G/KG, CONTINUING
     Route: 041
     Dates: start: 20130119
  4. REMODULIN [Suspect]
     Active Substance: TREPROSTINIL
     Dosage: 0.1008 ?G/KG, CONTINUING
     Route: 041

REACTIONS (4)
  - Seizure [Unknown]
  - Syncope [Unknown]
  - Device related infection [Unknown]
  - Injection site infection [Unknown]

NARRATIVE: CASE EVENT DATE: 201502
